FAERS Safety Report 19154048 (Version 4)
Quarter: 2021Q2

REPORT INFORMATION
  Report Type: Report from Study
  Country: US (occurrence: US)
  Receive Date: 20210419
  Receipt Date: 20210623
  Transmission Date: 20210717
  Serious: No
  Sender: FDA-Public Use
  Company Number: NVSC2021US087153

PATIENT
  Age: 57 Year
  Sex: Male

DRUGS (2)
  1. ENTRESTO [Suspect]
     Active Substance: SACUBITRIL\VALSARTAN
     Indication: CARDIAC FAILURE
     Dosage: 0.5 DF, BID  (24/26 MG)
     Route: 048
     Dates: start: 20210406
  2. ENTRESTO [Suspect]
     Active Substance: SACUBITRIL\VALSARTAN
     Indication: CARDIAC FAILURE CHRONIC
     Dosage: 1 DF (49/51MG)
     Route: 065

REACTIONS (8)
  - Abdominal pain upper [Unknown]
  - Dizziness [Unknown]
  - Wrong technique in product usage process [Unknown]
  - Swelling [Recovered/Resolved]
  - Dyspnoea [Recovered/Resolved]
  - Depression [Recovering/Resolving]
  - Fatigue [Recovering/Resolving]
  - Skin discolouration [Recovering/Resolving]

NARRATIVE: CASE EVENT DATE: 202104
